FAERS Safety Report 10029650 (Version 2)
Quarter: 2014Q1

REPORT INFORMATION
  Report Type: Spontaneous
  Country: US (occurrence: US)
  Receive Date: 20140322
  Receipt Date: 20140322
  Transmission Date: 20141002
  Serious: Yes (Death)
  Sender: FDA-Public Use
  Company Number: US-GE HEALTHCARE MEDICAL DIAGNOSTICS-OSCN-PR-0702S-0106

PATIENT
  Sex: Male

DRUGS (7)
  1. OMNISCAN [Suspect]
     Indication: KIDNEY FIBROSIS
     Dates: start: 20020319, end: 20020319
  2. OMNISCAN [Suspect]
     Indication: PANCREATIC MASS
     Dates: start: 20040322, end: 20040322
  3. OMNISCAN [Suspect]
     Indication: FLANK PAIN
     Dates: start: 20060608, end: 20060608
  4. OMNISCAN [Suspect]
     Indication: PELVIC VENOUS THROMBOSIS
     Dates: start: 20060829, end: 20060829
  5. RENAGEL [Concomitant]
  6. EPOETIN ALFA [Concomitant]
  7. GLUCAGON [Concomitant]

REACTIONS (1)
  - Nephrogenic systemic fibrosis [Fatal]
